FAERS Safety Report 5391492-2 (Version None)
Quarter: 2007Q3

REPORT INFORMATION
  Report Type: 
  Country: None (occurrence: None)
  Receive Date: 20070719
  Receipt Date: 20070706
  Transmission Date: 20080115
  Serious: Yes (Other)
  Sender: FDA-Public Use
  Company Number: CO-PFIZER INC-2006064307

PATIENT
  Age: 21 Year
  Sex: Male

DRUGS (2)
  1. EPAMIN [Suspect]
     Indication: CONVULSION
     Route: 065
  2. DILANTIN [Suspect]

REACTIONS (1)
  - CONVULSION [None]
